FAERS Safety Report 24716412 (Version 2)
Quarter: 2024Q4

REPORT INFORMATION
  Report Type: Report from Study
  Country: US (occurrence: US)
  Receive Date: 20241210
  Receipt Date: 20241210
  Transmission Date: 20250115
  Serious: Yes (Hospitalization, Other)
  Sender: ALEXION PHARMACEUTICALS
  Company Number: US-AstraZeneca-CH-00760278A

PATIENT
  Age: 78 Year
  Weight: 62.6 kg

DRUGS (4)
  1. OSIMERTINIB [Suspect]
     Active Substance: OSIMERTINIB
  2. OSIMERTINIB [Suspect]
     Active Substance: OSIMERTINIB
     Route: 048
  3. OSIMERTINIB [Suspect]
     Active Substance: OSIMERTINIB
  4. OSIMERTINIB [Suspect]
     Active Substance: OSIMERTINIB
     Route: 048

REACTIONS (6)
  - Clostridium difficile infection [Recovering/Resolving]
  - Dry mouth [Unknown]
  - Mastication disorder [Unknown]
  - Weight decreased [Unknown]
  - Dysphagia [Unknown]
  - Dry skin [Unknown]
